FAERS Safety Report 4724895-7 (Version None)
Quarter: 2005Q3

REPORT INFORMATION
  Report Type: 
  Country: None (occurrence: None)
  Receive Date: 20050726
  Receipt Date: 20050513
  Transmission Date: 20060218
  Serious: Yes (Hospitalization)
  Sender: FDA-Public Use
  Company Number: DE-ROCHE-405002

PATIENT
  Age: 62 Year
  Sex: Female

DRUGS (3)
  1. CAPECITABINE [Suspect]
     Indication: BREAST CANCER
     Route: 048
  2. NAVELBINE [Suspect]
     Indication: BREAST CANCER
     Route: 065
  3. BLOPRESS PLUS [Concomitant]
     Route: 048

REACTIONS (7)
  - BLOOD ALCOHOL INCREASED [None]
  - BLOOD PRESSURE INCREASED [None]
  - C-REACTIVE PROTEIN INCREASED [None]
  - HYPOVOLAEMIA [None]
  - INFLUENZA [None]
  - PARAESTHESIA [None]
  - PYREXIA [None]
